FAERS Safety Report 4958592-X (Version None)
Quarter: 2006Q1

REPORT INFORMATION
  Report Type: 
  Country: None (occurrence: None)
  Receive Date: 20060127
  Receipt Date: 20050117
  Transmission Date: 20060701
  Serious: Yes (Hospitalization)
  Sender: FDA-Public Use
  Company Number: 05-01-0071

PATIENT
  Age: 61 Year
  Sex: Male
  Weight: 93.8946 kg

DRUGS (3)
  1. CLOZAPINE [Suspect]
     Indication: SCHIZOPHRENIA
     Dosage: 300MG QD, ORAL
     Route: 048
     Dates: start: 20041214, end: 20041228
  2. DEPAKOTE [Concomitant]
  3. RISPERDAL [Concomitant]

REACTIONS (1)
  - MYOCARDIAL INFARCTION [None]
